FAERS Safety Report 13109922 (Version 1)
Quarter: 2017Q1

REPORT INFORMATION
  Report Type: Report from Study
  Country: US (occurrence: US)
  Receive Date: 20170112
  Receipt Date: 20170112
  Transmission Date: 20170428
  Serious: Yes (Hospitalization)
  Sender: FDA-Public Use
  Company Number: US-PROMETHEUS LABORATORIES-2015PL000176

PATIENT
  Age: 5 Year
  Sex: Male
  Weight: 18.9 kg

DRUGS (7)
  1. DINUTUXIMAB [Suspect]
     Active Substance: DINUTUXIMAB
     Indication: NEUROBLASTOMA
     Dosage: 17.5 MG/M2, DAILY
     Route: 042
     Dates: start: 20150615, end: 20150617
  2. PROLEUKIN [Suspect]
     Active Substance: ALDESLEUKIN
     Dosage: 4.5 MILLION IU, SEE NARRATIVE
     Dates: start: 20150615, end: 20150618
  3. LOPERAMIDE [Concomitant]
     Active Substance: LOPERAMIDE
  4. PROLEUKIN [Suspect]
     Active Substance: ALDESLEUKIN
     Indication: NEUROBLASTOMA
     Dosage: 3 MILLION IU, SEE NARRATIVE
     Dates: start: 20150608, end: 20150611
  5. GRANULOCYTE MACROPHAGE COLONY STIM FACTOR [Suspect]
     Active Substance: GRANULOCYTE-MACROPHAGE COLONY-STIMULATING FACTOR
     Indication: NEUROBLASTOMA
     Dosage: UNK, SEE NARRATIVE
     Dates: end: 20150528
  6. ZINC OXIDE. [Concomitant]
     Active Substance: ZINC OXIDE
  7. ISOTRETINOIN [Suspect]
     Active Substance: ISOTRETINOIN
     Indication: NEUROBLASTOMA
     Dosage: 80 MG/M2, TWICE DAILY
     Dates: start: 20150526, end: 20150608

REACTIONS (4)
  - Blood bilirubin increased [Recovering/Resolving]
  - Diarrhoea [Recovering/Resolving]
  - Blood fibrinogen decreased [Recovering/Resolving]
  - Posterior reversible encephalopathy syndrome [Recovering/Resolving]

NARRATIVE: CASE EVENT DATE: 201506
